FAERS Safety Report 7546947-9 (Version None)
Quarter: 2011Q2

REPORT INFORMATION
  Report Type: 
  Country: None (occurrence: None)
  Receive Date: 20110607
  Receipt Date: 20110523
  Transmission Date: 20111010
  Serious: Yes (Other)
  Sender: FDA-Public Use
  Company Number: 2011AP001065

PATIENT
  Sex: Female

DRUGS (1)
  1. PERINDOPRIL ERBUMINE [Suspect]
     Indication: PRODUCT USED FOR UNKNOWN INDICATION
     Dosage: PO, TAB; PO
     Route: 048

REACTIONS (4)
  - DISTURBANCE IN ATTENTION [None]
  - ATRIOVENTRICULAR BLOCK FIRST DEGREE [None]
  - CONDITION AGGRAVATED [None]
  - PALLOR [None]
